FAERS Safety Report 13377432 (Version 4)
Quarter: 2022Q3

REPORT INFORMATION
  Report Type: Spontaneous
  Country: SE (occurrence: SE)
  Receive Date: 20170328
  Receipt Date: 20220926
  Transmission Date: 20221027
  Serious: Yes (Other)
  Sender: FDA-Public Use
  Company Number: None

PATIENT
  Age: 63 Year
  Sex: Female

DRUGS (6)
  1. ZINACEF [Suspect]
     Active Substance: CEFUROXIME SODIUM
     Indication: Cataract operation
     Dosage: UNK
     Route: 065
     Dates: start: 20170228, end: 20170228
  2. PHENYLEPHRINE [Concomitant]
     Active Substance: PHENYLEPHRINE HYDROCHLORIDE
     Indication: Cataract operation
     Dosage: UNK
     Route: 065
     Dates: start: 20170228, end: 20170228
  3. TETRACAINE [Concomitant]
     Active Substance: TETRACAINE
     Indication: Cataract operation
     Dosage: UNK
     Route: 065
     Dates: start: 20170228, end: 20170228
  4. TROPICAMIDE [Concomitant]
     Active Substance: TROPICAMIDE
     Indication: Cataract operation
     Dosage: UNK
     Route: 065
     Dates: start: 20170228, end: 20170228
  5. CYCLOPENTOLATE HYDROCHLORIDE + LIDOCAINE HYDROCHLORIDE + PHENYLEPHRINE [Concomitant]
     Indication: Cataract operation
     Dosage: UNK
     Route: 065
  6. FENILEFRIN [Concomitant]
     Indication: Product used for unknown indication
     Dosage: UNK
     Route: 065

REACTIONS (3)
  - Dysuria [Recovered/Resolved]
  - Haematuria [Not Recovered/Not Resolved]
  - Azotaemia [Not Recovered/Not Resolved]

NARRATIVE: CASE EVENT DATE: 20170228
